FAERS Safety Report 17571614 (Version 1)
Quarter: 2020Q1

REPORT INFORMATION
  Report Type: Spontaneous
  Country: US (occurrence: US)
  Receive Date: 20200320
  Receipt Date: 20200320
  Transmission Date: 20200409
  Serious: No
  Sender: FDA-Public Use
  Company Number: None

PATIENT
  Age: 17 Year
  Sex: Male

DRUGS (2)
  1. MONTELUKAST [Suspect]
     Active Substance: MONTELUKAST SODIUM
     Route: 048
     Dates: start: 20200319, end: 20200320
  2. MONTELUKAST [Concomitant]
     Active Substance: MONTELUKAST SODIUM
     Dates: start: 20200319, end: 20200320

REACTIONS (8)
  - Tremor [None]
  - Dyspnoea [None]
  - Blood pressure increased [None]
  - Asthenia [None]
  - Insomnia [None]
  - Headache [None]
  - Dizziness [None]
  - Panic attack [None]

NARRATIVE: CASE EVENT DATE: 20200319
